FAERS Safety Report 16521357 (Version 1)
Quarter: 2019Q3

REPORT INFORMATION
  Report Type: Report from Study
  Country: CA (occurrence: CA)
  Receive Date: 20190703
  Receipt Date: 20190703
  Transmission Date: 20191004
  Serious: Yes (Other)
  Sender: FDA-Public Use
  Company Number: CA-GLAXOSMITHKLINE-CA2019AMR112832

PATIENT
  Age: 68 Year
  Sex: Female

DRUGS (2)
  1. MEPOLIZUMAB [Suspect]
     Active Substance: MEPOLIZUMAB
     Dosage: 100 MG, Z, MONTHLY
     Route: 042
  2. MEPOLIZUMAB [Suspect]
     Active Substance: MEPOLIZUMAB
     Indication: ASTHMA
     Dosage: 100 MG, Z, MONTHLY
     Route: 042
     Dates: start: 20171013

REACTIONS (10)
  - Pain [Unknown]
  - Pyrexia [Unknown]
  - Wheezing [Recovering/Resolving]
  - Headache [Unknown]
  - Productive cough [Recovering/Resolving]
  - Influenza [Unknown]
  - Pulmonary congestion [Unknown]
  - Cough [Unknown]
  - Oropharyngeal pain [Unknown]
  - Sputum discoloured [Recovering/Resolving]

NARRATIVE: CASE EVENT DATE: 20190617
